FAERS Safety Report 8477382-7 (Version None)
Quarter: 2012Q2

REPORT INFORMATION
  Report Type: 
  Country: None (occurrence: None)
  Receive Date: 20120629
  Receipt Date: 20120625
  Transmission Date: 20120825
  Serious: Yes (Hospitalization, Other)
  Sender: FDA-Public Use
  Company Number: PT-AMGEN-PRTSP2012038166

PATIENT
  Age: 74 Year
  Sex: Male
  Weight: 60 kg

DRUGS (3)
  1. NPLATE [Suspect]
     Indication: THROMBOCYTOPENIC PURPURA
     Dosage: 600 MUG, QWK
     Route: 058
     Dates: start: 20111216
  2. NPLATE [Suspect]
     Dosage: 490 MUG, UNK
  3. RITUXIMAB [Concomitant]
     Dosage: UNK

REACTIONS (7)
  - EPISTAXIS [None]
  - THERAPEUTIC RESPONSE DECREASED [None]
  - GINGIVAL BLEEDING [None]
  - THROMBOCYTOPENIA [None]
  - PLATELET COUNT INCREASED [None]
  - ECCHYMOSIS [None]
  - PETECHIAE [None]
